FAERS Safety Report 12681223 (Version 1)
Quarter: 2016Q3

REPORT INFORMATION
  Report Type: Spontaneous
  Country: US (occurrence: US)
  Receive Date: 20160824
  Receipt Date: 20160824
  Transmission Date: 20161109
  Serious: No
  Sender: FDA-Public Use
  Company Number: US-SHIRE-US201610649

PATIENT
  Age: 82 Year
  Sex: Female
  Weight: 68.27 kg

DRUGS (5)
  1. PRILOSEC [Concomitant]
     Active Substance: OMEPRAZOLE MAGNESIUM
     Indication: ULCER HAEMORRHAGE
     Dosage: 20 MG, 2X/DAY:BID
     Route: 048
     Dates: start: 2013
  2. LIALDA [Suspect]
     Active Substance: MESALAMINE
     Dosage: 1.2 G, UNKNOWN
     Route: 048
     Dates: start: 2014
  3. TYLENOL [Concomitant]
     Active Substance: ACETAMINOPHEN
     Indication: ARTHRITIS
     Dosage: 650 MG, 3X/DAY:TID
  4. ALIGN [Concomitant]
     Active Substance: BIFIDOBACTERIUM LONGUM SUBSP. INFANTIS
     Indication: COLITIS
     Dosage: UNK, 1X/DAY:QD
     Route: 048
  5. LIALDA [Suspect]
     Active Substance: MESALAMINE
     Indication: COLITIS ULCERATIVE
     Dosage: 1.2 G, 4X/DAY:QID
     Route: 048
     Dates: start: 2014, end: 20160730

REACTIONS (5)
  - Irritability [Not Recovered/Not Resolved]
  - Inappropriate schedule of drug administration [Unknown]
  - Back pain [Not Recovered/Not Resolved]
  - Drug dose omission [Not Recovered/Not Resolved]
  - Abdominal discomfort [Not Recovered/Not Resolved]

NARRATIVE: CASE EVENT DATE: 2016
